FAERS Safety Report 15865124 (Version 3)
Quarter: 2019Q2

REPORT INFORMATION
  Report Type: Spontaneous
  Country: US (occurrence: US)
  Receive Date: 20190124
  Receipt Date: 20190524
  Transmission Date: 20190711
  Serious: No
  Sender: FDA-Public Use
  Company Number: US-009507513-1812USA012059

PATIENT
  Age: 59 Year
  Sex: Male

DRUGS (12)
  1. ASMANEX [Suspect]
     Active Substance: MOMETASONE FUROATE
     Dosage: 2 PUFFS DAILY OR 3 PUFFS DAILY (ONCE IN A WHILE)
     Dates: start: 2019
  2. ASMANEX [Suspect]
     Active Substance: MOMETASONE FUROATE
     Dosage: UNK
     Route: 055
  3. AMLODIPINE [Concomitant]
     Active Substance: AMLODIPINE BESYLATE
  4. ASMANEX [Suspect]
     Active Substance: MOMETASONE FUROATE
     Indication: ASTHMA
     Dosage: 2 PUFFS DAILY OR 3 PUFFS DAILY (ONCE IN A WHILE)
     Dates: start: 2015, end: 201902
  5. ATORVASTATIN [Concomitant]
     Active Substance: ATORVASTATIN
  6. ASMANEX [Suspect]
     Active Substance: MOMETASONE FUROATE
     Dosage: UNK
  7. TIZANIDINE HYDROCHLORIDE. [Concomitant]
     Active Substance: TIZANIDINE HYDROCHLORIDE
  8. HYDROCHLOROTHIAZIDE. [Concomitant]
     Active Substance: HYDROCHLOROTHIAZIDE
  9. LISINOPRIL. [Concomitant]
     Active Substance: LISINOPRIL
  10. KLONOPIN [Suspect]
     Active Substance: CLONAZEPAM
  11. ARNUITY ELLIPTA [Suspect]
     Active Substance: FLUTICASONE FUROATE
     Dosage: UNK
     Dates: start: 20190507, end: 20190516
  12. VENTOLIN HFA [Concomitant]
     Active Substance: ALBUTEROL SULFATE

REACTIONS (13)
  - Headache [Recovered/Resolved]
  - Product supply issue [Not Recovered/Not Resolved]
  - Respiratory disorder [Unknown]
  - Adverse event [Not Recovered/Not Resolved]
  - Product quality issue [Unknown]
  - Poor quality product administered [Unknown]
  - Inappropriate schedule of product administration [Unknown]
  - Underdose [Unknown]
  - Product quality issue [Unknown]
  - Poor quality product administered [Unknown]
  - Product dose omission [Unknown]
  - Palpitations [Not Recovered/Not Resolved]
  - Extra dose administered [Unknown]

NARRATIVE: CASE EVENT DATE: 20181224
